FAERS Safety Report 5852045-2 (Version None)
Quarter: 2008Q3

REPORT INFORMATION
  Report Type: 
  Country: None (occurrence: None)
  Receive Date: 20080820
  Receipt Date: 20080820
  Transmission Date: 20090109
  Serious: No
  Sender: FDA-Public Use
  Company Number: None

PATIENT
  Age: 66 Year
  Sex: Male

DRUGS (2)
  1. THYMOGLOBULIN [Suspect]
     Indication: CHILLS
     Dosage: 100 MG OTO IV
     Route: 042
     Dates: start: 20080721, end: 20080721
  2. THYMOGLOBULIN [Suspect]
     Indication: PYREXIA
     Dosage: 100 MG OTO IV
     Route: 042
     Dates: start: 20080721, end: 20080721

REACTIONS (3)
  - CHILLS [None]
  - INFUSION RELATED REACTION [None]
  - PYREXIA [None]
